FAERS Safety Report 5036021-8 (Version None)
Quarter: 2006Q2

REPORT INFORMATION
  Report Type: 
  Country: None (occurrence: None)
  Receive Date: 20060601
  Receipt Date: 20060511
  Transmission Date: 20061013
  Serious: Yes (Other)
  Sender: FDA-Public Use
  Company Number: US200604002439

PATIENT
  Sex: Female

DRUGS (19)
  1. CYMBALTA [Suspect]
     Indication: DEPRESSION
     Dosage: 60 MG
     Dates: start: 20050701
  2. AVAPRO [Concomitant]
  3. METHADONE HCL [Concomitant]
  4. LEVAQUIN [Concomitant]
  5. CEFTIN [Concomitant]
  6. DIFLUCAN [Concomitant]
  7. OXYCODONE (OXYCODONE) [Concomitant]
  8. RITALIN [Concomitant]
  9. DOXYCYCLINE (DOXYCYLINE) [Concomitant]
  10. NEXIUM [Concomitant]
  11. XANAX [Concomitant]
  12. CELEXA [Concomitant]
  13. CORTEF [Concomitant]
  14. ZYRTEC [Concomitant]
  15. DOXYCYCLINE HCL [Concomitant]
  16. NEXIUM [Concomitant]
  17. XANAX [Concomitant]
  18. CELEXA [Concomitant]
  19. CORTEF [Concomitant]

REACTIONS (4)
  - AGGRESSION [None]
  - DRUG INEFFECTIVE [None]
  - SOCIAL AVOIDANT BEHAVIOUR [None]
  - SUICIDE ATTEMPT [None]
